FAERS Safety Report 9551987 (Version 1)
Quarter: 2013Q4

REPORT INFORMATION
  Report Type: Spontaneous
  Country: US (occurrence: None)
  Receive Date: 20130923
  Receipt Date: 20130923
  Transmission Date: 20140711
  Serious: Yes (Life-Threatening)
  Sender: FDA-Public Use
  Company Number: None

PATIENT
  Age: 65 Year
  Sex: Female
  Weight: 59.5 kg

DRUGS (1)
  1. PAZOPANIB [Suspect]
     Indication: ANGIOSARCOMA
     Dosage: 800MG DAILY  PO
     Route: 048
     Dates: start: 20130724, end: 20130822

REACTIONS (4)
  - Hepatotoxicity [None]
  - Alanine aminotransferase increased [None]
  - Aspartate aminotransferase increased [None]
  - Blood bilirubin increased [None]
